FAERS Safety Report 4905295-3 (Version None)
Quarter: 2006Q1

REPORT INFORMATION
  Report Type: 
  Country: None (occurrence: None)
  Receive Date: 20060203
  Receipt Date: 20060124
  Transmission Date: 20060701
  Serious: Yes (Hospitalization, Other)
  Sender: FDA-Public Use
  Company Number: 2006AP000060

PATIENT
  Age: 43 Year
  Sex: Female

DRUGS (1)
  1. HALOPERIDOL [Suspect]
     Indication: DEPRESSION

REACTIONS (18)
  - ALANINE AMINOTRANSFERASE INCREASED [None]
  - ALCOHOLIC LIVER DISEASE [None]
  - ASPARTATE AMINOTRANSFERASE INCREASED [None]
  - BLOOD ALBUMIN DECREASED [None]
  - BLOOD OSMOLARITY DECREASED [None]
  - CENTRAL PONTINE MYELINOLYSIS [None]
  - DELIRIUM [None]
  - DYSPHAGIA [None]
  - GAMMA-GLUTAMYLTRANSFERASE INCREASED [None]
  - HYPOCHLORAEMIA [None]
  - HYPOKALAEMIA [None]
  - HYPONATRAEMIA [None]
  - MALNUTRITION [None]
  - MOTOR DYSFUNCTION [None]
  - PROTEIN TOTAL DECREASED [None]
  - QUADRIPARESIS [None]
  - RESTLESSNESS [None]
  - THERAPY NON-RESPONDER [None]
